FAERS Safety Report 19096475 (Version 1)
Quarter: 2021Q2

REPORT INFORMATION
  Report Type: Report from Study
  Country: JP (occurrence: JP)
  Receive Date: 20210406
  Receipt Date: 20210406
  Transmission Date: 20210717
  Serious: Yes (Life-Threatening, Other)
  Sender: FDA-Public Use
  Company Number: JP-AMGEN-JPNNI2019004452

PATIENT
  Age: 80 Year
  Sex: Female

DRUGS (14)
  1. BLINATUMOMAB [Suspect]
     Active Substance: BLINATUMOMAB
     Indication: B PRECURSOR TYPE ACUTE LEUKAEMIA
     Dosage: 9 MICROGRAM, QD
     Route: 041
     Dates: start: 20181218, end: 20181224
  2. ORGADRONE [DEXAMETHASONE SODIUM PHOSPHATE] [Concomitant]
     Dosage: UNK
     Dates: start: 20190305, end: 20190305
  3. BLINATUMOMAB [Suspect]
     Active Substance: BLINATUMOMAB
     Dosage: 28 MICROGRAM, QD
     Route: 041
     Dates: start: 20181225, end: 20190114
  4. ORGADRONE [DEXAMETHASONE SODIUM PHOSPHATE] [Concomitant]
     Dosage: UNK
     Dates: start: 20190301, end: 20190301
  5. ORGADRONE [DEXAMETHASONE SODIUM PHOSPHATE] [Concomitant]
     Indication: PROPHYLAXIS
     Dosage: UNK
     Dates: end: 20181218
  6. ORGADRONE [DEXAMETHASONE SODIUM PHOSPHATE] [Concomitant]
     Dosage: UNK
     Dates: start: 20190228, end: 20190228
  7. BLINATUMOMAB [Suspect]
     Active Substance: BLINATUMOMAB
     Dosage: 28 MICROGRAM, QD
     Route: 041
     Dates: start: 20190301, end: 20190303
  8. BLINATUMOMAB [Suspect]
     Active Substance: BLINATUMOMAB
     Dosage: 9 MICROGRAM, QD
     Route: 041
     Dates: start: 20190305, end: 20190311
  9. PREDNISOLONE. [Concomitant]
     Active Substance: PREDNISOLONE
  10. ORGADRONE [DEXAMETHASONE SODIUM PHOSPHATE] [Concomitant]
     Dosage: UNK
     Dates: start: 20181225, end: 20181225
  11. ORGADRONE [DEXAMETHASONE SODIUM PHOSPHATE] [Concomitant]
     Dosage: UNK
     Dates: start: 20190128, end: 20190128
  12. ORGADRONE [DEXAMETHASONE SODIUM PHOSPHATE] [Concomitant]
     Dosage: UNK
     Dates: start: 20190312, end: 20190312
  13. BLINATUMOMAB [Suspect]
     Active Substance: BLINATUMOMAB
     Dosage: 28 MICROGRAM, QD
     Route: 041
     Dates: start: 20190312, end: 20190328
  14. DEXAMETHASONE. [Concomitant]
     Active Substance: DEXAMETHASONE

REACTIONS (5)
  - Tumour lysis syndrome [Recovering/Resolving]
  - Febrile neutropenia [Recovered/Resolved]
  - Cytokine release syndrome [Recovered/Resolved]
  - Neutrophil count decreased [Recovered/Resolved]
  - Anaemia [Recovering/Resolving]

NARRATIVE: CASE EVENT DATE: 20190302
